FAERS Safety Report 12091914 (Version 1)
Quarter: 2016Q1

REPORT INFORMATION
  Report Type: Spontaneous
  Country: IE (occurrence: IE)
  Receive Date: 20160219
  Receipt Date: 20160219
  Transmission Date: 20160526
  Serious: Yes (Other)
  Sender: FDA-Public Use
  Company Number: IE-009507513-1602IRL007232

PATIENT
  Age: 86 Year
  Sex: Male

DRUGS (5)
  1. ENOXAPARIN SODIUM. [Concomitant]
     Active Substance: ENOXAPARIN SODIUM
     Dosage: 20 MG, UNK
     Dates: start: 20151118, end: 20160129
  2. FOLIC ACID. [Concomitant]
     Active Substance: FOLIC ACID
     Dosage: 5 MG, 1 IN 1 DAY
     Dates: start: 20151118, end: 20160129
  3. FIDAXOMICIN [Suspect]
     Active Substance: FIDAXOMICIN
     Indication: CLOSTRIDIUM DIFFICILE INFECTION
     Dosage: 200 MG, 2 IN 1 DAY
     Route: 048
     Dates: start: 20160126, end: 20160129
  4. AZTREONAM. [Suspect]
     Active Substance: AZTREONAM
     Indication: PNEUMONIA ASPIRATION
     Dosage: 1 G, 3 IN 1 DAY
     Route: 042
     Dates: start: 20160126, end: 20160129
  5. THIAMINE. [Concomitant]
     Active Substance: THIAMINE
     Dosage: 100 MG, 3 IN 1 DAY
     Dates: start: 20150118, end: 20160129

REACTIONS (1)
  - Liver function test increased [Unknown]

NARRATIVE: CASE EVENT DATE: 20160128
